FAERS Safety Report 23913356 (Version 1)
Quarter: 2024Q2

REPORT INFORMATION
  Report Type: Spontaneous
  Country: US (occurrence: US)
  Receive Date: 20240529
  Receipt Date: 20240529
  Transmission Date: 20240716
  Serious: Yes (Hospitalization, Other)
  Sender: FDA-Public Use
  Company Number: US-CELLTRION INC.-2024US012269

PATIENT

DRUGS (2)
  1. INFLIXIMAB [Suspect]
     Active Substance: INFLIXIMAB
     Indication: Crohn^s disease
     Dosage: 5 MILLIGRAM/KILOGRAM EVERY 6 WEEKS FOR THE PAST 3.5 YEARS
     Route: 042
  2. INFLIXIMAB [Suspect]
     Active Substance: INFLIXIMAB
     Dosage: 5 MILLIGRAM/KILOGRAM EVERY 6 WEEKS
     Route: 042

REACTIONS (4)
  - Drug eruption [Recovering/Resolving]
  - Groin abscess [Recovering/Resolving]
  - Staphylococcal infection [Recovering/Resolving]
  - Intentional product use issue [Unknown]
